FAERS Safety Report 22025755 (Version 1)
Quarter: 2023Q1

REPORT INFORMATION
  Report Type: Spontaneous
  Country: US (occurrence: None)
  Receive Date: 20230223
  Receipt Date: 20230223
  Transmission Date: 20230417
  Serious: No
  Sender: FDA-Public Use
  Company Number: US-ROCHE-3156701

PATIENT
  Sex: Female

DRUGS (4)
  1. XOLAIR [Suspect]
     Active Substance: OMALIZUMAB
     Indication: Psoriasis
     Dosage: STRENGTH; 150 MG/ML
     Route: 058
     Dates: start: 202009
  2. XOLAIR [Suspect]
     Active Substance: OMALIZUMAB
  3. XOLAIR [Suspect]
     Active Substance: OMALIZUMAB
  4. OTEZLA [Concomitant]
     Active Substance: APREMILAST
     Dates: end: 20220726

REACTIONS (5)
  - Off label use [Unknown]
  - Weight decreased [Unknown]
  - Pruritus [Unknown]
  - Burning sensation [Unknown]
  - Pain [Unknown]
